FAERS Safety Report 11059305 (Version 1)
Quarter: 2015Q2

REPORT INFORMATION
  Report Type: Spontaneous
  Country: SE (occurrence: SE)
  Receive Date: 20150423
  Receipt Date: 20150423
  Transmission Date: 20150821
  Serious: Yes (Life-Threatening)
  Sender: FDA-Public Use
  Company Number: SE-TEVA-556837ISR

PATIENT
  Age: 48 Year
  Sex: Male

DRUGS (1)
  1. SIMVASTATIN 40 MILLIGRAM TABLETTER PER ORAL [Suspect]
     Active Substance: SIMVASTATIN
     Route: 048

REACTIONS (2)
  - Toxicity to various agents [Recovered/Resolved]
  - Suicide attempt [Recovered/Resolved]
